FAERS Safety Report 13093286 (Version 9)
Quarter: 2025Q3

REPORT INFORMATION
  Report Type: Spontaneous
  Country: AU (occurrence: AU)
  Receive Date: 20170106
  Receipt Date: 20250716
  Transmission Date: 20251020
  Serious: Yes (Other)
  Sender: PFIZER
  Company Number: AU-MLMSERVICE-20161229-0555041-1

PATIENT
  Age: 18 Year
  Sex: Female
  Weight: 46 kg

DRUGS (7)
  1. FENTANYL CITRATE [Suspect]
     Active Substance: FENTANYL CITRATE
     Indication: Hollow visceral myopathy
     Route: 042
  2. FENTANYL CITRATE [Suspect]
     Active Substance: FENTANYL CITRATE
     Indication: Analgesic therapy
     Route: 042
  3. FENTANYL CITRATE [Suspect]
     Active Substance: FENTANYL CITRATE
     Route: 042
  4. FENTANYL CITRATE [Suspect]
     Active Substance: FENTANYL CITRATE
     Route: 042
  5. TRAMADOL HCL [Suspect]
     Active Substance: TRAMADOL HYDROCHLORIDE
     Indication: Analgesic therapy
     Dosage: UNK, 4X/DAY (HIGH DOSE)
     Route: 048
  6. TRAMADOL HCL [Suspect]
     Active Substance: TRAMADOL HYDROCHLORIDE
     Indication: Abdominal pain
     Route: 048
  7. TRAMADOL HCL [Suspect]
     Active Substance: TRAMADOL HYDROCHLORIDE
     Dosage: 100 UG, 3X/DAY (TDS)
     Route: 048

REACTIONS (1)
  - Adrenal insufficiency [Recovered/Resolved]
